FAERS Safety Report 6078485-7 (Version None)
Quarter: 2009Q1

REPORT INFORMATION
  Report Type: 
  Country: None (occurrence: None)
  Receive Date: 20090211
  Receipt Date: 20090211
  Transmission Date: 20090719
  Serious: Yes (Life-Threatening, Hospitalization, Other)
  Sender: FDA-Public Use
  Company Number: None

PATIENT
  Age: 17 Year
  Sex: Male
  Weight: 67.1324 kg

DRUGS (2)
  1. CORICIDIN [Suspect]
     Indication: INTENTIONAL DRUG MISUSE
     Dosage: 16   1
     Dates: start: 20090206
  2. DEXTROMETHORPHAN HYDROBROMIDE [Suspect]

REACTIONS (2)
  - HEART RATE INCREASED [None]
  - INCORRECT DOSE ADMINISTERED [None]
